FAERS Safety Report 12602102 (Version 1)
Quarter: 2016Q3

REPORT INFORMATION
  Report Type: Spontaneous
  Country: US (occurrence: None)
  Receive Date: 20160727
  Receipt Date: 20160727
  Transmission Date: 20161109
  Serious: Yes (Hospitalization)
  Sender: FDA-Public Use
  Company Number: None

PATIENT
  Age: 78 Year
  Sex: Male

DRUGS (1)
  1. ENOXAPARIN [Suspect]
     Active Substance: ENOXAPARIN
     Indication: DEEP VEIN THROMBOSIS
     Route: 058
     Dates: start: 20160109, end: 20160708

REACTIONS (7)
  - Nausea [None]
  - Cerebral haemorrhage [None]
  - Hypertension [None]
  - Headache [None]
  - Vomiting [None]
  - Mental status changes [None]
  - Unresponsive to stimuli [None]

NARRATIVE: CASE EVENT DATE: 20160708
